FAERS Safety Report 24776744 (Version 1)
Quarter: 2024Q4

REPORT INFORMATION
  Report Type: Spontaneous
  Country: NL (occurrence: NL)
  Receive Date: 20241226
  Receipt Date: 20241226
  Transmission Date: 20250115
  Serious: Yes (Life-Threatening, Hospitalization)
  Sender: ACCORD
  Company Number: None

PATIENT
  Age: 71 Year
  Sex: Female
  Weight: 77 kg

DRUGS (13)
  1. CARBOPLATIN [Suspect]
     Active Substance: CARBOPLATIN
     Indication: Ovarian cancer
     Dosage: 608 MG IV, INFUSION
     Dates: start: 20240913, end: 20241014
  2. METOCLOPRAMIDE [Concomitant]
     Active Substance: METOCLOPRAMIDE
     Dosage: STRENGTH: 10 MG
  3. EDOXABAN [Concomitant]
     Active Substance: EDOXABAN
     Dosage: STRENGTH: 60 MG
  4. FENTANYL [Concomitant]
     Active Substance: FENTANYL
     Dosage: PATCH
  5. CHOLECALCIFEROL [Concomitant]
     Active Substance: CHOLECALCIFEROL
  6. ONDANSETRON [Concomitant]
     Active Substance: ONDANSETRON
     Dosage: STRENGTH: 8 MG
  7. PANTOPRAZOLE [Concomitant]
     Active Substance: PANTOPRAZOLE
     Dosage: STRENGTH: 40 MG
  8. ACETAMINOPHEN [Concomitant]
     Active Substance: ACETAMINOPHEN
     Dosage: STRENGTH: 1000MG
  9. PREGABALIN [Concomitant]
     Active Substance: PREGABALIN
     Dosage: STRENGTH: 75MG, CAPSULE
  10. SOTALOL [Concomitant]
     Active Substance: SOTALOL
     Dosage: STRENGTH: 40MG
  11. TEMAZEPAM [Concomitant]
     Active Substance: TEMAZEPAM
     Dosage: STRENGTH: 10MG
  12. VASELINE PURE [Concomitant]
     Active Substance: PETROLATUM
     Dosage: STRENGTH: 500/500 MG/G, OINTMENT
  13. VITAMIN B COMPLEX [Concomitant]
     Active Substance: CYANOCOBALAMIN\DEXPANTHENOL\NIACINAMIDE\PYRIDOXINE HYDROCHLORIDE\RIBOFLAVIN 5^-PHOSPHATE SODIUM\THIA

REACTIONS (2)
  - Autoimmune haemolytic anaemia [Recovered/Resolved]
  - Cold type haemolytic anaemia [Recovered/Resolved]

NARRATIVE: CASE EVENT DATE: 20241030
